FAERS Safety Report 6356620-0 (Version None)
Quarter: 2009Q3

REPORT INFORMATION
  Report Type: 
  Country: None (occurrence: None)
  Receive Date: 20090915
  Receipt Date: 20090908
  Transmission Date: 20100115
  Serious: Yes (Hospitalization)
  Sender: FDA-Public Use
  Company Number: PT-JNJFOC-20090902592

PATIENT
  Age: 12 Year
  Sex: Male

DRUGS (2)
  1. REMICADE [Suspect]
     Indication: CROHN'S DISEASE
     Dosage: INITIATED 6 WEEKS AGO (REPORTED ON 04-SEP-2009)
     Route: 042
  2. AZATHIOPRINE [Concomitant]

REACTIONS (3)
  - ENCEPHALITIS [None]
  - SKIN LESION [None]
  - VARICELLA [None]
